FAERS Safety Report 15429416 (Version 2)
Quarter: 2018Q4

REPORT INFORMATION
  Report Type: Spontaneous
  Country: CN (occurrence: CN)
  Receive Date: 20180926
  Receipt Date: 20181205
  Transmission Date: 20190204
  Serious: Yes (Hospitalization, Other)
  Sender: FDA-Public Use
  Company Number: CN-LUPIN PHARMACEUTICALS INC.-2018-06655

PATIENT
  Age: 70 Year
  Sex: Female

DRUGS (15)
  1. RIFAMPIN. [Suspect]
     Active Substance: RIFAMPIN
     Indication: PULMONARY TUBERCULOSIS
     Dosage: UNK
     Route: 065
  2. RIFAMPIN. [Suspect]
     Active Substance: RIFAMPIN
     Indication: EXTRAPULMONARY TUBERCULOSIS
  3. LINEZOLID. [Suspect]
     Active Substance: LINEZOLID
     Indication: TUBERCULOSIS
     Dosage: 600 MG, BID
     Route: 065
     Dates: start: 20170831
  4. ISONIAZID. [Suspect]
     Active Substance: ISONIAZID
     Indication: PULMONARY TUBERCULOSIS
     Dosage: UNK
     Route: 065
  5. PYRAZINAMIDE. [Suspect]
     Active Substance: PYRAZINAMIDE
     Indication: TUBERCULOUS PLEURISY
  6. ETHAMBUTOL [Suspect]
     Active Substance: ETHAMBUTOL HYDROCHLORIDE
     Indication: TUBERCULOUS PLEURISY
  7. PYRAZINAMIDE. [Suspect]
     Active Substance: PYRAZINAMIDE
     Indication: PULMONARY TUBERCULOSIS
     Dosage: UNK
     Route: 065
  8. ISONIAZID. [Suspect]
     Active Substance: ISONIAZID
     Indication: TUBERCULOUS PLEURISY
  9. MOXIFLOXACIN. [Suspect]
     Active Substance: MOXIFLOXACIN
     Indication: TUBERCULOSIS
     Dosage: UNK
     Route: 065
     Dates: start: 20170127
  10. RIFAMPIN. [Suspect]
     Active Substance: RIFAMPIN
     Indication: TUBERCULOUS PLEURISY
  11. ETHAMBUTOL [Suspect]
     Active Substance: ETHAMBUTOL HYDROCHLORIDE
     Indication: EXTRAPULMONARY TUBERCULOSIS
  12. ISONIAZID. [Suspect]
     Active Substance: ISONIAZID
     Indication: EXTRAPULMONARY TUBERCULOSIS
  13. LINEZOLID. [Suspect]
     Active Substance: LINEZOLID
     Dosage: 300 MG, QD
     Dates: start: 20170928
  14. ETHAMBUTOL [Suspect]
     Active Substance: ETHAMBUTOL HYDROCHLORIDE
     Indication: PULMONARY TUBERCULOSIS
     Dosage: UNK
     Route: 065
  15. PYRAZINAMIDE. [Suspect]
     Active Substance: PYRAZINAMIDE
     Indication: EXTRAPULMONARY TUBERCULOSIS

REACTIONS (2)
  - Thrombocytopenia [Recovered/Resolved]
  - Tuberculosis [Unknown]
